FAERS Safety Report 5652745-3 (Version None)
Quarter: 2008Q1

REPORT INFORMATION
  Report Type: 
  Country: None (occurrence: None)
  Receive Date: 20080131
  Receipt Date: 20071024
  Transmission Date: 20080703
  Serious: No
  Sender: FDA-Public Use
  Company Number: US200710005233

PATIENT
  Age: 65 Year
  Sex: Female
  Weight: 121.5 kg

DRUGS (11)
  1. BYETTA [Suspect]
     Indication: WEIGHT CONTROL
     Dosage: 5 UG, 2/D, SUBCUTANEOUS
     Route: 058
     Dates: start: 20071020, end: 20071020
  2. DARVOCET [Concomitant]
  3. VALIUM [Concomitant]
  4. TYLENOL /USA/ (PARACETAMOL) [Concomitant]
  5. PLAVIX [Concomitant]
  6. ZETIA [Concomitant]
  7. LISINOPRIL [Concomitant]
  8. SYNTHROID [Concomitant]
  9. ADVAIR DISKUS 100/50 [Concomitant]
  10. ALBUTEROL [Concomitant]
  11. NITROCLYCERINUM (GLYCERYL TRINITRATE) [Concomitant]

REACTIONS (17)
  - ANGINA PECTORIS [None]
  - BACK PAIN [None]
  - BLOOD GLUCOSE DECREASED [None]
  - BLOOD PRESSURE FLUCTUATION [None]
  - FACIAL PAIN [None]
  - FATIGUE [None]
  - FEAR [None]
  - FEELING COLD [None]
  - FEELING JITTERY [None]
  - HEADACHE [None]
  - HYPERTENSION [None]
  - HYPOAESTHESIA FACIAL [None]
  - NAUSEA [None]
  - PRURITUS [None]
  - SOMNOLENCE [None]
  - TREMOR [None]
  - VOMITING [None]
